FAERS Safety Report 8607841-5 (Version None)
Quarter: 2012Q3

REPORT INFORMATION
  Report Type: 
  Country: None (occurrence: None)
  Receive Date: 20120821
  Receipt Date: 20120817
  Transmission Date: 20120928
  Serious: Yes (Hospitalization)
  Sender: FDA-Public Use
  Company Number: PHHY2012FR071666

PATIENT
  Age: 67 Year
  Sex: Female
  Weight: 82 kg

DRUGS (6)
  1. ZOLEDRONOC ACID [Suspect]
     Indication: OSTEOPOROSIS
     Dosage: UNK
     Route: 042
     Dates: start: 20111107
  2. ULTRA LEVURA [Concomitant]
  3. CEFIXIME [Concomitant]
  4. VENTOLIN [Concomitant]
  5. LANSOPRAZOLE [Concomitant]
  6. HELICIDINE [Concomitant]

REACTIONS (1)
  - HERNIAL EVENTRATION [None]
